FAERS Safety Report 4726142-9 (Version None)
Quarter: 2005Q3

REPORT INFORMATION
  Report Type: 
  Country: None (occurrence: None)
  Receive Date: 20050725
  Receipt Date: 20050725
  Transmission Date: 20060218
  Serious: Yes (Death, Hospitalization)
  Sender: FDA-Public Use
  Company Number: None

PATIENT
  Age: 52 Year
  Sex: Female
  Weight: 91.6266 kg

DRUGS (12)
  1. BEVACIZUMAB [Suspect]
     Indication: HEPATIC NEOPLASM MALIGNANT
     Dosage: 10 MG/KG IV Q 2 WEEKS
     Route: 042
     Dates: start: 20041006, end: 20050613
  2. GEMCITABINE [Suspect]
     Indication: HEPATIC NEOPLASM MALIGNANT
     Dosage: 1000 MG/M2
     Dates: start: 20041019, end: 20050614
  3. OXALIPLATIN [Suspect]
     Indication: HEPATIC NEOPLASM MALIGNANT
     Dosage: 85 MG/M2
     Dates: start: 20041019, end: 20050614
  4. FENTANYL [Concomitant]
  5. REGLAN [Concomitant]
  6. OXYCODONE [Concomitant]
  7. LANTUS [Concomitant]
  8. GLUCOPHAGE [Concomitant]
  9. GLYBURIDE [Concomitant]
  10. PROTONIX [Concomitant]
  11. LASIX [Concomitant]
  12. SPIRONOLACTONE [Concomitant]

REACTIONS (6)
  - CONFUSIONAL STATE [None]
  - LUNG INFILTRATION [None]
  - PRODUCTIVE COUGH [None]
  - PYREXIA [None]
  - RESPIRATORY FAILURE [None]
  - VOMITING [None]
